FAERS Safety Report 12143718 (Version 1)
Quarter: 2016Q1

REPORT INFORMATION
  Report Type: Spontaneous
  Country: US (occurrence: US)
  Receive Date: 20160304
  Receipt Date: 20160304
  Transmission Date: 20160526
  Serious: No
  Sender: FDA-Public Use
  Company Number: US-JNJFOC-20160114273

PATIENT
  Age: 69 Year
  Sex: Female
  Weight: 87.09 kg

DRUGS (2)
  1. CHILDRENS ZYRTEC [Suspect]
     Active Substance: CETIRIZINE HYDROCHLORIDE
     Route: 048
  2. CHILDRENS ZYRTEC [Suspect]
     Active Substance: CETIRIZINE HYDROCHLORIDE
     Indication: MULTIPLE ALLERGIES
     Route: 048
     Dates: start: 20160118

REACTIONS (5)
  - Off label use [Unknown]
  - Expired product administered [Unknown]
  - Drug administered to patient of inappropriate age [None]
  - Wrong patient received medication [Unknown]
  - Accidental overdose [Unknown]

NARRATIVE: CASE EVENT DATE: 20160118
